FAERS Safety Report 24092227 (Version 2)
Quarter: 2024Q3

REPORT INFORMATION
  Report Type: Other
  Country: PA (occurrence: PA)
  Receive Date: 20240715
  Receipt Date: 20240923
  Transmission Date: 20241017
  Serious: Yes (Hospitalization)
  Sender: TOLMAR
  Company Number: PA-TOLMAR, INC.-24PA050402

PATIENT
  Age: 87 Year
  Sex: Male

DRUGS (4)
  1. ELIGARD [Suspect]
     Active Substance: LEUPROLIDE ACETATE
     Indication: Prostate cancer
     Dosage: 45 MILLIGRAM, Q 6 MONTH
     Route: 058
     Dates: start: 202401
  2. ELIGARD [Suspect]
     Active Substance: LEUPROLIDE ACETATE
     Dosage: 45 MILLIGRAM, Q 6 MONTH
     Route: 058
  3. ELIGARD [Suspect]
     Active Substance: LEUPROLIDE ACETATE
     Indication: Prostate cancer
     Dosage: UNK
  4. XTANDI [Suspect]
     Active Substance: ENZALUTAMIDE
     Indication: Prostate cancer
     Dosage: UNK
     Route: 048

REACTIONS (1)
  - Gastrointestinal carcinoma [Recovering/Resolving]

NARRATIVE: CASE EVENT DATE: 20240614
